FAERS Safety Report 9474706 (Version 2)
Quarter: 2013Q4

REPORT INFORMATION
  Report Type: Spontaneous
  Country: CM (occurrence: CM)
  Receive Date: 20130823
  Receipt Date: 20131018
  Transmission Date: 20140711
  Serious: Yes (Hospitalization, Other)
  Sender: FDA-Public Use
  Company Number: CM-009507513-1308CMR009475

PATIENT
  Age: 30 Year
  Sex: Female

DRUGS (5)
  1. MECTIZAN [Suspect]
     Indication: FILARIASIS LYMPHATIC
     Dosage: 3 TABLETS, UNK
     Dates: start: 20130714
  2. MECTIZAN [Suspect]
     Indication: ONCHOCERCIASIS
  3. ALBENDAZOLE [Suspect]
     Indication: FILARIASIS LYMPHATIC
     Dosage: 1 DF, UNK
     Dates: start: 20130714
  4. ALBENDAZOLE [Suspect]
     Indication: ONCHOCERCIASIS
  5. DI-HYDAN [Concomitant]
     Dosage: UNKNOWN

REACTIONS (7)
  - Skin ulcer [Not Recovered/Not Resolved]
  - Pyrexia [Unknown]
  - Generalised oedema [Unknown]
  - Toxic epidermal necrolysis [Unknown]
  - Pruritus [Unknown]
  - Asthenia [Unknown]
  - Decreased appetite [Unknown]
